FAERS Safety Report 5415797-1 (Version None)
Quarter: 2007Q3

REPORT INFORMATION
  Report Type: 
  Country: None (occurrence: None)
  Receive Date: 20070815
  Receipt Date: 20070803
  Transmission Date: 20080115
  Serious: Yes (Other)
  Sender: FDA-Public Use
  Company Number: US-PFIZER INC-2007065618

PATIENT
  Sex: Female
  Weight: 71.818 kg

DRUGS (11)
  1. LYRICA [Suspect]
     Indication: FIBROMYALGIA
  2. ZOCOR [Concomitant]
  3. ALL OTHER THERAPEUTIC PRODUCTS [Concomitant]
  4. NEXIUM [Concomitant]
  5. AMITRIPTYLINE HCL [Concomitant]
  6. CYMBALTA [Concomitant]
  7. GABITRIL [Concomitant]
  8. BISOPROLOL [Concomitant]
     Dosage: DAILY DOSE:5MG
  9. LOTREL [Concomitant]
  10. ALPRAZOLAM [Concomitant]
  11. IBUPROFEN [Concomitant]

REACTIONS (2)
  - EYE SWELLING [None]
  - WEIGHT INCREASED [None]
